FAERS Safety Report 16844584 (Version 1)
Quarter: 2019Q3

REPORT INFORMATION
  Report Type: Spontaneous
  Country: US (occurrence: US)
  Receive Date: 20190924
  Receipt Date: 20190924
  Transmission Date: 20191005
  Serious: Yes (Other)
  Sender: FDA-Public Use
  Company Number: US-BIOCODEX SA-201901183

PATIENT
  Sex: Female

DRUGS (1)
  1. DIACOMIT [Suspect]
     Active Substance: STIRIPENTOL
     Dosage: 2 CAPSULES TWICE DAILY
     Route: 048
     Dates: start: 20190627

REACTIONS (2)
  - Somnolence [Unknown]
  - Seizure [Unknown]
